FAERS Safety Report 9373832 (Version 1)
Quarter: 2013Q2

REPORT INFORMATION
  Report Type: Spontaneous
  Country: FR (occurrence: FR)
  Receive Date: 20130628
  Receipt Date: 20130628
  Transmission Date: 20140414
  Serious: Yes (Hospitalization)
  Sender: FDA-Public Use
  Company Number: FR-ROCHE-1241824

PATIENT
  Age: 87 Year
  Sex: Male

DRUGS (11)
  1. ROCEPHINE [Suspect]
     Indication: PROSTATITIS
     Route: 065
     Dates: start: 20130517, end: 20130606
  2. SYMBICORT [Concomitant]
  3. KARDEGIC [Concomitant]
  4. TRINIPATCH [Concomitant]
  5. INSPRA [Concomitant]
  6. FUROSEMIDE [Concomitant]
  7. LERCAN [Concomitant]
  8. VASTEN [Concomitant]
  9. INSULATARD [Concomitant]
  10. INEXIUM [Concomitant]
  11. MONO-TILDIEM [Concomitant]

REACTIONS (3)
  - Rash maculo-papular [Recovered/Resolved]
  - Diarrhoea [Recovered/Resolved]
  - Pyrexia [Recovered/Resolved]
